FAERS Safety Report 6454638-0 (Version None)
Quarter: 2009Q4

REPORT INFORMATION
  Report Type: 
  Country: None (occurrence: None)
  Receive Date: 20091118
  Receipt Date: 20091103
  Transmission Date: 20100525
  Serious: Yes (Death)
  Sender: FDA-Public Use
  Company Number: DSU-2009-02466

PATIENT

DRUGS (3)
  1. AZOR [Suspect]
     Indication: DRUG USE FOR UNKNOWN INDICATION
     Dosage: 10/40MG (QD), PER ORAL
     Route: 048
  2. HCTZ (HYDROCHLOROTHIAZIDE)(HYDROCHLOROTHIAZIDE) [Concomitant]
  3. ASPIRIN [Concomitant]

REACTIONS (1)
  - RHABDOMYOLYSIS [None]
